FAERS Safety Report 5291424-1 (Version None)
Quarter: 2007Q2

REPORT INFORMATION
  Report Type: 
  Country: None (occurrence: None)
  Receive Date: 20070402
  Receipt Date: 20070321
  Transmission Date: 20071010
  Serious: Yes (Death, Life-Threatening, Hospitalization, Other)
  Sender: FDA-Public Use
  Company Number: VER_0050_2007

PATIENT
  Age: 36 Year
  Sex: Male

DRUGS (4)
  1. EPINEPHRINE [Suspect]
     Indication: ALLERGY TO ARTHROPOD STING
     Dosage: 0.3 ML ONCE SC
     Route: 058
  2. EPINEPHRINE [Suspect]
     Indication: HAEMODYNAMIC INSTABILITY
     Dosage: 0.3 ML ONCE SC
     Route: 058
  3. EPINEPHRINE [Suspect]
     Indication: ALLERGY TO ARTHROPOD STING
     Dosage: 1 ML ONCE IV
     Route: 042
  4. EPINEPHRINE [Suspect]
     Indication: HAEMODYNAMIC INSTABILITY
     Dosage: 1 ML ONCE IV
     Route: 042

REACTIONS (6)
  - BLOOD PRESSURE INCREASED [None]
  - GRAND MAL CONVULSION [None]
  - INTRAVENTRICULAR HAEMORRHAGE [None]
  - LOSS OF CONSCIOUSNESS [None]
  - OXYGEN SATURATION DECREASED [None]
  - SUBARACHNOID HAEMORRHAGE [None]
